FAERS Safety Report 24129306 (Version 3)
Quarter: 2024Q3

REPORT INFORMATION
  Report Type: Spontaneous
  Country: MX (occurrence: MX)
  Receive Date: 20240723
  Receipt Date: 20240903
  Transmission Date: 20241017
  Serious: No
  Sender: AMGEN
  Company Number: MX-AMGEN-MEXSP2024139733

PATIENT
  Sex: Male

DRUGS (2)
  1. PEGFILGRASTIM [Suspect]
     Active Substance: PEGFILGRASTIM
     Indication: Product used for unknown indication
     Dosage: UNK
     Route: 065
  2. PEGFILGRASTIM [Suspect]
     Active Substance: PEGFILGRASTIM
     Dosage: UNK
     Route: 065

REACTIONS (3)
  - Device malfunction [Unknown]
  - Drug dose omission by device [Unknown]
  - Device placement issue [Unknown]

NARRATIVE: CASE EVENT DATE: 20240709
